FAERS Safety Report 8279209-5 (Version None)
Quarter: 2012Q2

REPORT INFORMATION
  Report Type: 
  Country: None (occurrence: None)
  Receive Date: 20120412
  Receipt Date: 20120113
  Transmission Date: 20120825
  Serious: No
  Sender: FDA-Public Use
  Company Number: US-ASTRAZENECA-2012SE03247

PATIENT
  Age: 78 Year
  Sex: Male

DRUGS (2)
  1. NEXIUM [Suspect]
     Route: 048
  2. VITAMIN D [Concomitant]

REACTIONS (3)
  - THYROID DISORDER [None]
  - RENAL DISORDER [None]
  - WEIGHT DECREASED [None]
